FAERS Safety Report 16060177 (Version 1)
Quarter: 2019Q1

REPORT INFORMATION
  Report Type: Spontaneous
  Country: GB (occurrence: GB)
  Receive Date: 20190312
  Receipt Date: 20190312
  Transmission Date: 20190418
  Serious: Yes (Death, Congenital Anomaly, Other)
  Sender: FDA-Public Use
  Company Number: GB-AUROBINDO-AUR-APL-2019-012774

PATIENT

DRUGS (5)
  1. PHENYTOIN. [Suspect]
     Active Substance: PHENYTOIN
     Dosage: 150 MILLIGRAM, DAILY (150 MG, QD)
     Route: 064
  2. PHENYTOIN. [Suspect]
     Active Substance: PHENYTOIN
     Indication: PRODUCT USED FOR UNKNOWN INDICATION
     Dosage: 600 MILLIGRAM, DAILY (600 MG, QD)
     Route: 064
  3. PHENOBARBITAL. [Suspect]
     Active Substance: PHENOBARBITAL
     Dosage: 135 MILLIGRAM, DAILY (135 MG, QD)
     Route: 064
  4. PHENOBARBITAL. [Suspect]
     Active Substance: PHENOBARBITAL
     Indication: PRODUCT USED FOR UNKNOWN INDICATION
     Dosage: 90 MILLIGRAM, DAILY (90 MG, QD)
     Route: 064
  5. PHENYTOIN. [Suspect]
     Active Substance: PHENYTOIN
     Dosage: 300 MILLIGRAM, DAILY (300 MG, QD)
     Route: 064

REACTIONS (7)
  - Oesophageal atresia [Unknown]
  - Right ventricular enlargement [Unknown]
  - Ventricular septal defect [Unknown]
  - Renal fusion anomaly [Unknown]
  - Anal atresia [Unknown]
  - Foetal death [Fatal]
  - Foetal exposure during pregnancy [Unknown]
